FAERS Safety Report 8784658 (Version 1)
Quarter: 2012Q4

REPORT INFORMATION
  Report Type: Spontaneous
  Country: US (occurrence: None)
  Receive Date: 20120830
  Receipt Date: 20120830
  Transmission Date: 20130627
  Serious: Yes (Other)
  Sender: FDA-Public Use
  Company Number: NSR_00643_2012

PATIENT
  Age: 63 Year
  Sex: Male

DRUGS (7)
  1. FLUOXETINE [Suspect]
     Indication: DEPRESSION
     Route: 048
     Dates: start: 20120814
  2. LOSARTAN [Suspect]
     Indication: HYPERTENSION
     Route: 048
     Dates: start: 20120814
  3. SIMVASTATIN [Concomitant]
  4. METFORMIN [Concomitant]
  5. GEMFIBROZIL [Concomitant]
  6. DIAZEPAM [Concomitant]
  7. FLUOXETINE [Concomitant]

REACTIONS (7)
  - Drug interaction [None]
  - Mania [None]
  - Personality disorder [None]
  - Incorrect dose administered [None]
  - Product quality issue [None]
  - Agitation [None]
  - Irritability [None]
